FAERS Safety Report 8621661-7 (Version None)
Quarter: 2012Q3

REPORT INFORMATION
  Report Type: 
  Country: None (occurrence: None)
  Receive Date: 20120821
  Receipt Date: 20120821
  Transmission Date: 20120928
  Serious: No
  Sender: FDA-Public Use
  Company Number: None

PATIENT
  Age: 74 Year
  Sex: Female
  Weight: 72.5755 kg

DRUGS (1)
  1. CLOPIDOGREL [Suspect]
     Indication: COAGULOPATHY
     Dosage: 75 MG ONE/DAY ORAL @ 2MONTHS
     Route: 048

REACTIONS (2)
  - PRODUCT SUBSTITUTION ISSUE [None]
  - ALOPECIA [None]
